FAERS Safety Report 6328709-3 (Version None)
Quarter: 2009Q3

REPORT INFORMATION
  Report Type: 
  Country: None (occurrence: None)
  Receive Date: 20090826
  Receipt Date: 20090820
  Transmission Date: 20100115
  Serious: Yes (Other)
  Sender: FDA-Public Use
  Company Number: PHEH2009US09622

PATIENT
  Sex: Female

DRUGS (3)
  1. RECLAST [Suspect]
     Dosage: UNK, ONCE/SINGLE USE
     Dates: start: 20090819, end: 20090819
  2. SIMVASTATIN [Concomitant]
     Dosage: UNK, UNK
  3. ACYCLOVIR [Concomitant]
     Dosage: UNK, UNK

REACTIONS (2)
  - CHILLS [None]
  - PARALYSIS [None]
